FAERS Safety Report 8911418 (Version 1)
Quarter: 2012Q4

REPORT INFORMATION
  Report Type: 
  Country: US (occurrence: US)
  Receive Date: 20121116
  Receipt Date: 20121116
  Transmission Date: 20130627
  Serious: Yes (Hospitalization)
  Sender: FDA-Public Use
  Company Number: US-BAYER-2012-117958

PATIENT
  Age: 38 Year
  Sex: Female
  Weight: 100 kg

DRUGS (9)
  1. YAZ [Suspect]
     Indication: PREMENSTRUAL DYSPHORIC DISORDER
  2. HYDROCODONE W/APAP [Concomitant]
     Dosage: 7.5 mg / 750 mg
  3. AMOXICILLIN W/CLAVULANIC ACID [Concomitant]
     Dosage: 875 mg, UNK
  4. LEXAPRO [Concomitant]
     Indication: PREMENSTRUAL DYSPHORIC DISORDER
     Dosage: 20 mg, daily
  5. WELLBUTRIN XL [Concomitant]
     Indication: PREMENSTRUAL DYSPHORIC DISORDER
     Dosage: 150 mg, daily
  6. BUDEPRION [Concomitant]
     Indication: PREMENSTRUAL DYSPHORIC DISORDER
     Dosage: 150 mg, daily
  7. MULTIVITAMIN [Concomitant]
     Dosage: daily
  8. ARIXTRA [Concomitant]
  9. PERCOCET [Concomitant]

REACTIONS (1)
  - Deep vein thrombosis [Recovered/Resolved]
